FAERS Safety Report 16033769 (Version 2)
Quarter: 2019Q1

REPORT INFORMATION
  Report Type: Report from Study
  Country: VN (occurrence: VN)
  Receive Date: 20190305
  Receipt Date: 20190306
  Transmission Date: 20190418
  Serious: Yes (Other)
  Sender: FDA-Public Use
  Company Number: VN-ROCHE-2269820

PATIENT

DRUGS (3)
  1. CAPECITABINE. [Suspect]
     Active Substance: CAPECITABINE
     Indication: METASTATIC GASTRIC CANCER
     Dosage: 750 MG/M2 FROM DAY 1 TO DAY 14, EVERY 21 DAYS
     Route: 048
  2. CARBOPLATIN. [Suspect]
     Active Substance: CARBOPLATIN
     Indication: METASTATIC GASTRIC CANCER
     Dosage: CARBOPLATIN AUC 5 ON DAY 1, EVERY 21 DAYS
     Route: 065
  3. PACLITAXEL. [Suspect]
     Active Substance: PACLITAXEL
     Indication: METASTATIC GASTRIC CANCER
     Dosage: 175 MG/M2 ON DAY 1, EVERY 21 DAYS
     Route: 042

REACTIONS (14)
  - Off label use [Unknown]
  - Diarrhoea [Unknown]
  - Fatigue [Unknown]
  - Stomatitis [Unknown]
  - Alanine aminotransferase increased [Unknown]
  - Vomiting [Unknown]
  - Anaemia [Unknown]
  - Platelet count decreased [Unknown]
  - Aspartate aminotransferase increased [Unknown]
  - Palmar-plantar erythrodysaesthesia syndrome [Unknown]
  - Neurotoxicity [Unknown]
  - Blood bilirubin increased [Unknown]
  - Neutropenia [Unknown]
  - Intentional product use issue [Unknown]
